FAERS Safety Report 9767655 (Version 1)
Quarter: 2013Q4

REPORT INFORMATION
  Report Type: Spontaneous
  Country: US (occurrence: None)
  Receive Date: 20131213
  Receipt Date: 20131213
  Transmission Date: 20140711
  Serious: Yes (Hospitalization, Other)
  Sender: FDA-Public Use
  Company Number: 2013-US-003014

PATIENT
  Age: 56 Year
  Sex: Female
  Weight: 68 kg

DRUGS (2)
  1. XYREM [Suspect]
     Indication: NARCOLEPSY
     Route: 048
     Dates: start: 201009
  2. PERCOCET (OXYCODONE HYDROCLORIDE, PARACETAMOL) [Concomitant]

REACTIONS (3)
  - Ovarian cyst [None]
  - Oophorectomy [None]
  - Epilepsy [None]
